FAERS Safety Report 6369808-X (Version None)
Quarter: 2009Q3

REPORT INFORMATION
  Report Type: 
  Country: None (occurrence: None)
  Receive Date: 20090923
  Receipt Date: 20090921
  Transmission Date: 20100115
  Serious: Yes (Hospitalization)
  Sender: FDA-Public Use
  Company Number: KR-BRISTOL-MYERS SQUIBB COMPANY-14609374

PATIENT
  Age: 67 Year
  Sex: Male
  Weight: 67 kg

DRUGS (14)
  1. PACLITAXEL [Suspect]
     Indication: NON-SMALL CELL LUNG CANCER
     Route: 042
     Dates: start: 20090305, end: 20090305
  2. CARBOPLATIN [Suspect]
     Indication: NON-SMALL CELL LUNG CANCER
     Route: 042
     Dates: start: 20090305, end: 20090305
  3. CP-751,871 [Suspect]
     Indication: NON-SMALL CELL LUNG CANCER
     Route: 042
     Dates: start: 20090305, end: 20090305
  4. CODEINE PHOSPHATE AND ACETAMINOPHEN [Concomitant]
     Dates: start: 20090304
  5. IBUPROFEN [Concomitant]
     Dates: start: 20090304
  6. MAGNESIUM OXIDE [Concomitant]
     Dates: start: 20090304
  7. METOCLOPRAMIDE [Concomitant]
     Dates: start: 20090304
  8. LORAZEPAM [Concomitant]
     Dates: start: 20090304
  9. CHLORHEXIDINE GLUCONATE [Concomitant]
     Dates: start: 20090304
  10. GLIMEPIRIDE [Concomitant]
     Dosage: THERAPY ONGOING
     Dates: start: 19940101
  11. METFORMIN HCL [Concomitant]
     Dosage: THERAPY ONGOING
     Dates: start: 19940101
  12. DOXAZOSIN MESYLATE [Concomitant]
     Dosage: THERAPY ONGOING
     Dates: start: 20080101
  13. CLOPIDOGREL BISULFATE [Concomitant]
     Dosage: THERAPY ONGOING
     Dates: start: 20080101
  14. CILOSTAZOL [Concomitant]
     Dosage: THERAPY ONGOING
     Dates: start: 20080101

REACTIONS (1)
  - HYPERGLYCAEMIA [None]
